FAERS Safety Report 8291853 (Version 4)
Quarter: 2013Q1

REPORT INFORMATION
  Report Type: Spontaneous
  Country: US (occurrence: US)
  Receive Date: 20111214
  Receipt Date: 20130308
  Transmission Date: 20140127
  Serious: Yes (Other)
  Sender: FDA-Public Use
  Company Number: US-MYLANLABS-2011S1025148

PATIENT
  Age: 22 Year
  Sex: Female

DRUGS (4)
  1. SALBUTAMOL [Suspect]
     Indication: ASTHMA
     Route: 065
  2. SALBUTAMOL [Suspect]
     Indication: ASTHMA
     Dosage: FIVE NEBULISATIONS (2.5MG)
     Route: 055
  3. FLUTICASONE PROPIONATE W/SALMETEROL [Concomitant]
     Dosage: 250/50
     Route: 065
  4. MONTELUKAST [Concomitant]
     Dosage: 10 MG
     Route: 065

REACTIONS (1)
  - Lactic acidosis [Recovered/Resolved]
